FAERS Safety Report 21099026 (Version 2)
Quarter: 2022Q3

REPORT INFORMATION
  Report Type: Report from Study
  Country: US (occurrence: US)
  Receive Date: 20220719
  Receipt Date: 20220801
  Transmission Date: 20221027
  Serious: Yes (Hospitalization)
  Sender: FDA-Public Use
  Company Number: US-ALKERMES INC.-ALK-2022-003465

PATIENT
  Age: 33 Year
  Sex: Male

DRUGS (22)
  1. VIVITROL [Suspect]
     Active Substance: NALTREXONE
     Indication: Drug use disorder
     Dosage: 380 MILLIGRAM, QMO
     Route: 030
     Dates: start: 20220701
  2. VIVITROL [Suspect]
     Active Substance: NALTREXONE
     Dosage: 380 MILLIGRAM, QMO
     Route: 030
     Dates: start: 20220602, end: 20220602
  3. BUPRENORPHINE [Suspect]
     Active Substance: BUPRENORPHINE
     Indication: Drug use disorder
     Dosage: 6 MILLIGRAM, QD
     Route: 048
     Dates: start: 20220528, end: 20220528
  4. NALTREXONE [Suspect]
     Active Substance: NALTREXONE
     Indication: Drug use disorder
     Dosage: 6 MILLIGRAM, QD
     Route: 048
     Dates: start: 20220602, end: 20220602
  5. NALTREXONE [Suspect]
     Active Substance: NALTREXONE
     Dosage: 6 MILLIGRAM, QD
     Route: 048
     Dates: start: 20220601, end: 20220601
  6. NALTREXONE [Suspect]
     Active Substance: NALTREXONE
     Dosage: 1 MILLIGRAM, QD
     Route: 048
     Dates: start: 20220531, end: 20220531
  7. NALTREXONE [Suspect]
     Active Substance: NALTREXONE
     Dosage: 1 MILLIGRAM, QD
     Route: 048
     Dates: start: 20220530, end: 20220530
  8. CLONIDINE [Concomitant]
     Active Substance: CLONIDINE
     Indication: Prophylaxis
     Dosage: 0.4 MILLIGRAM, QD
     Route: 065
     Dates: start: 20220601, end: 20220601
  9. CLONIDINE [Concomitant]
     Active Substance: CLONIDINE
     Dosage: 0.6 MILLIGRAM, QD
     Route: 065
     Dates: start: 20220531, end: 20220531
  10. CLONIDINE [Concomitant]
     Active Substance: CLONIDINE
     Dosage: 0.8 MILLIGRAM, QD
     Route: 065
     Dates: start: 20220530, end: 20220530
  11. CLONIDINE [Concomitant]
     Active Substance: CLONIDINE
     Dosage: 0.2 MILLIGRAM, QD
     Route: 065
     Dates: start: 20220529, end: 20220529
  12. CLONIDINE [Concomitant]
     Active Substance: CLONIDINE
     Dosage: 0.4 MILLIGRAM, QD
     Route: 065
     Dates: start: 20220528, end: 20220528
  13. CLONAZEPAM [Concomitant]
     Active Substance: CLONAZEPAM
     Indication: Prophylaxis
     Dosage: 1 MILLIGRAM, QD
     Route: 065
     Dates: start: 20220602, end: 20220602
  14. CLONAZEPAM [Concomitant]
     Active Substance: CLONAZEPAM
     Dosage: 2 MILLIGRAM, QD
     Route: 065
     Dates: start: 20220601, end: 20220601
  15. CLONAZEPAM [Concomitant]
     Active Substance: CLONAZEPAM
     Dosage: 4 MILLIGRAM, QD
     Route: 065
     Dates: start: 20220531, end: 20220531
  16. CLONAZEPAM [Concomitant]
     Active Substance: CLONAZEPAM
     Dosage: 4 MILLIGRAM, QD
     Route: 065
     Dates: start: 20220530, end: 20220530
  17. CLONAZEPAM [Concomitant]
     Active Substance: CLONAZEPAM
     Dosage: 2 MILLIGRAM, QD
     Route: 065
     Dates: start: 20220529, end: 20220529
  18. CLONAZEPAM [Concomitant]
     Active Substance: CLONAZEPAM
     Dosage: 3 MILLIGRAM, QD
     Route: 065
     Dates: start: 20220528, end: 20220528
  19. GABAPENTIN [Concomitant]
     Active Substance: GABAPENTIN
     Indication: Product used for unknown indication
     Dosage: UNK
     Route: 065
  20. QUETIAPINE [Concomitant]
     Active Substance: QUETIAPINE
     Indication: Product used for unknown indication
     Dosage: UNK
     Route: 065
  21. VENLAFAXINE [Concomitant]
     Active Substance: VENLAFAXINE HYDROCHLORIDE
     Indication: Product used for unknown indication
     Dosage: UNK
     Route: 065
  22. INSULIN NOS [Concomitant]
     Active Substance: INSULIN NOS
     Indication: Product used for unknown indication
     Dosage: UNK
     Route: 065

REACTIONS (1)
  - Hospitalisation [Recovered/Resolved]

NARRATIVE: CASE EVENT DATE: 20220603
